FAERS Safety Report 16544586 (Version 1)
Quarter: 2019Q3

REPORT INFORMATION
  Report Type: Spontaneous
  Country: US (occurrence: US)
  Receive Date: 20190709
  Receipt Date: 20190709
  Transmission Date: 20191004
  Serious: No
  Sender: FDA-Public Use
  Company Number: US-C B FLEET CO INC-201812-US-003159

PATIENT
  Sex: Female

DRUGS (1)
  1. NIX [Suspect]
     Active Substance: PERMETHRIN
     Indication: LICE INFESTATION
     Dosage: DOSAGE UNKNOWN
     Route: 061
     Dates: start: 20181224

REACTIONS (4)
  - Skin irritation [Not Recovered/Not Resolved]
  - Scab [Not Recovered/Not Resolved]
  - Skin injury [Not Recovered/Not Resolved]
  - Skin haemorrhage [Not Recovered/Not Resolved]
